FAERS Safety Report 5936250-2 (Version None)
Quarter: 2008Q4

REPORT INFORMATION
  Report Type: 
  Country: None (occurrence: None)
  Receive Date: 20081030
  Receipt Date: 20080612
  Transmission Date: 20090506
  Serious: No
  Sender: FDA-Public Use
  Company Number: A0732669A

PATIENT
  Age: 59 Year
  Sex: Male

DRUGS (6)
  1. SEREVENT [Suspect]
     Dosage: 1PUFF AS REQUIRED
     Route: 055
     Dates: start: 20080401, end: 20080606
  2. ZYRTEC [Concomitant]
  3. DIOVAN [Concomitant]
  4. HYDROCHLOROTHIAZIDE [Concomitant]
  5. ATENOLOL [Concomitant]
  6. ZOCOR [Concomitant]

REACTIONS (4)
  - MOUTH ULCERATION [None]
  - ORAL PAIN [None]
  - OROPHARYNGEAL PAIN [None]
  - SWELLING FACE [None]
